FAERS Safety Report 4687398-4 (Version None)
Quarter: 2005Q2

REPORT INFORMATION
  Report Type: 
  Country: None (occurrence: None)
  Receive Date: 20050608
  Receipt Date: 20050525
  Transmission Date: 20051028
  Serious: Yes (Other)
  Sender: FDA-Public Use
  Company Number: 2005026295

PATIENT
  Age: 61 Year
  Sex: Female
  Weight: 95.2554 kg

DRUGS (34)
  1. CELEBREX [Suspect]
     Indication: OSTEOARTHRITIS
     Dosage: 400 MG (200 MG, 2 IN 1 D), ORAL
     Route: 048
  2. CELEBREX [Suspect]
     Indication: OSTEOPENIA
     Dosage: 400 MG (200 MG, 2 IN 1 D), ORAL
     Route: 048
  3. CELEBREX [Suspect]
     Indication: PAIN
     Dosage: 400 MG (200 MG, 2 IN 1 D), ORAL
     Route: 048
  4. ZYRTEC [Suspect]
     Indication: BRONCHITIS
     Dosage: (10 MG,), ORAL
     Route: 048
     Dates: start: 20020101
  5. ZYRTEC [Suspect]
     Indication: MULTIPLE ALLERGIES
     Dosage: (10 MG,), ORAL
     Route: 048
     Dates: start: 20020101
  6. ZYRTEC [Suspect]
     Indication: SINUSITIS
     Dosage: (10 MG,), ORAL
     Route: 048
     Dates: start: 20020101
  7. DETROL LA [Suspect]
     Indication: BLADDER DISORDER
     Dosage: ORAL
     Route: 048
  8. AMBIEN [Suspect]
     Indication: INSOMNIA
     Dates: start: 20040101, end: 20040101
  9. VALSARTAN [Suspect]
     Indication: HYPERTENSION
     Dates: end: 20040101
  10. METOCLOPRAMIDE [Concomitant]
  11. PLENDIL [Concomitant]
  12. METOPROLOL TARTRATE [Concomitant]
  13. OXYCONTIN [Concomitant]
  14. DIAZEPAM [Concomitant]
  15. OXYCODONE (OXYCODONE) [Concomitant]
  16. EFFEXOR XR [Concomitant]
  17. PREMARIN [Concomitant]
  18. GUAIFENESIN W/DEXTROMETHORPHAN (DEXTROMETHORPHAN, GUAIFENESIN) [Concomitant]
  19. ALPHAGAN [Concomitant]
  20. AZOPT [Concomitant]
  21. NASACORT [Concomitant]
  22. FLOVENT [Concomitant]
  23. ALBUTEROL [Concomitant]
  24. LACTULOSE [Concomitant]
  25. CENTRUM (MINERALS NOS, VITAMINS NOS) [Concomitant]
  26. VITAMIN A (NATURAL) CAP [Concomitant]
  27. ASPIRIN [Concomitant]
  28. DOCUSATE (DOCUSATE) [Concomitant]
  29. TRAZODONE (TRAZODONE) [Concomitant]
  30. LIDODERM PATCH (LIDOCAINE HYDROCHLORIDE) [Concomitant]
  31. DILTIA XT (DILTIAZEM HYDROCHLORIDE) [Concomitant]
  32. DYAZIDE [Concomitant]
  33. VALIUM [Concomitant]
  34. MAXZIDE [Concomitant]

REACTIONS (13)
  - ARTERIAL INSUFFICIENCY [None]
  - BALANCE DISORDER [None]
  - CONDITION AGGRAVATED [None]
  - CONSTIPATION [None]
  - DRUG INEFFECTIVE [None]
  - DRY MOUTH [None]
  - GANGRENE [None]
  - HYPERTENSION [None]
  - INSOMNIA [None]
  - POLYDIPSIA [None]
  - POST PROCEDURAL COMPLICATION [None]
  - POST PROCEDURAL PAIN [None]
  - URINARY INCONTINENCE [None]
